FAERS Safety Report 7516084-8 (Version None)
Quarter: 2011Q2

REPORT INFORMATION
  Report Type: 
  Country: None (occurrence: None)
  Receive Date: 20110601
  Receipt Date: 20110520
  Transmission Date: 20111010
  Serious: Yes (Other)
  Sender: FDA-Public Use
  Company Number: JP-ACTELION-A-CH2011-49182

PATIENT
  Sex: Female
  Weight: 43 kg

DRUGS (11)
  1. RABEPRAZOLE SODIUM [Concomitant]
  2. CILOSTAZOL [Concomitant]
  3. TOCOPHERYL NICOTINATE [Concomitant]
  4. TRACLEER [Suspect]
     Indication: PULMONARY ARTERIAL HYPERTENSION
     Dosage: 31.25 MG, QD
     Route: 048
     Dates: start: 20100209, end: 20100218
  5. AMLODIPINE BESYLATE [Concomitant]
  6. VALSARTAN [Concomitant]
  7. PREDNISOLONE [Concomitant]
  8. BERAPROST SODIUM [Concomitant]
  9. SARPOGRELATE HYDROCHLORIDE [Concomitant]
  10. TRICHLORMETHIAZIDE [Concomitant]
  11. SPIRONOLACTONE [Concomitant]

REACTIONS (2)
  - PERICARDIAL EFFUSION [None]
  - CONCOMITANT DISEASE AGGRAVATED [None]
